FAERS Safety Report 17203527 (Version 1)
Quarter: 2019Q4

REPORT INFORMATION
  Report Type: Spontaneous
  Country: US (occurrence: US)
  Receive Date: 20191226
  Receipt Date: 20191226
  Transmission Date: 20200122
  Serious: No
  Sender: FDA-Public Use
  Company Number: US-CATALYST PHARMACEUTICALS, INC-2019CAT00597

PATIENT
  Sex: Female
  Weight: 54.42 kg

DRUGS (6)
  1. FIRDAPSE [Suspect]
     Active Substance: AMIFAMPRIDINE
     Indication: MYASTHENIC SYNDROME
     Dosage: 10 MG, 3X/DAY THEN TO 15 MG, 10MG, 10 MG
     Route: 048
     Dates: start: 20191026, end: 2019
  2. 14 UNSPECIFIED MEDICATIONS [Concomitant]
     Indication: BLOOD PRESSURE ABNORMAL
  3. 14 UNSPECIFIED MEDICATIONS [Concomitant]
     Indication: BLOOD CHOLESTEROL ABNORMAL
  4. FIRDAPSE [Suspect]
     Active Substance: AMIFAMPRIDINE
     Dosage: 10 MG, 2X/DAY
     Route: 048
     Dates: start: 2019
  5. FIRDAPSE [Suspect]
     Active Substance: AMIFAMPRIDINE
     Dosage: 15 MG, 1X/DAY
     Route: 048
     Dates: start: 2019
  6. 14 UNSPECIFIED MEDICATIONS [Concomitant]
     Indication: MENTAL DISORDER

REACTIONS (4)
  - Malaise [Recovering/Resolving]
  - Abdominal pain upper [Recovering/Resolving]
  - Nausea [Recovering/Resolving]
  - Headache [Recovering/Resolving]

NARRATIVE: CASE EVENT DATE: 2019
